FAERS Safety Report 5690973-1 (Version None)
Quarter: 2008Q2

REPORT INFORMATION
  Report Type: 
  Country: None (occurrence: None)
  Receive Date: 20080401
  Receipt Date: 20080325
  Transmission Date: 20081010
  Serious: Yes (Hospitalization)
  Sender: FDA-Public Use
  Company Number: US-ELI_LILLY_AND_COMPANY-US200802006288

PATIENT
  Sex: Female

DRUGS (4)
  1. BYETTA [Suspect]
     Dosage: 5 UG, 2/D
     Route: 058
     Dates: start: 20061101
  2. BYETTA [Suspect]
     Dosage: 10 UG, 2/D
     Route: 058
  3. GLUCOVANCE [Concomitant]
     Dosage: UNK, 2/D
  4. CRESTOR [Concomitant]
     Dosage: 5 MG, UNK
     Route: 048

REACTIONS (4)
  - BLOOD GLUCOSE INCREASED [None]
  - CALCULUS URETERIC [None]
  - INJECTION SITE PARAESTHESIA [None]
  - STAG HORN CALCULUS [None]
